FAERS Safety Report 18841824 (Version 2)
Quarter: 2021Q1

REPORT INFORMATION
  Report Type: Report from Study
  Country: AR (occurrence: AR)
  Receive Date: 20210203
  Receipt Date: 20210322
  Transmission Date: 20210419
  Serious: Yes (Life-Threatening, Hospitalization, Other)
  Sender: FDA-Public Use
  Company Number: AR-TAKEDA-AR201930962

PATIENT
  Age: 11 Year
  Sex: Male
  Weight: 28 kg

DRUGS (5)
  1. IDURSULFASE [Suspect]
     Active Substance: IDURSULFASE
     Indication: MUCOPOLYSACCHARIDOSIS II
     Dosage: 18 MILLIGRAM, 1X/WEEK
     Route: 065
     Dates: start: 201311
  2. IDURSULFASE [Suspect]
     Active Substance: IDURSULFASE
     Dosage: UNK
     Route: 065
     Dates: start: 20190915
  3. IDURSULFASE [Suspect]
     Active Substance: IDURSULFASE
     Dosage: 18 MILLIGRAM, 1/WEEK
     Route: 042
  4. RESCUE [Concomitant]
     Dosage: 1.5 MILLILITER
     Route: 048
  5. MORPHINE [Concomitant]
     Active Substance: MORPHINE
     Dosage: 3 MILLILITER, Q6HR
     Route: 048

REACTIONS (12)
  - Vomiting [Recovered/Resolved]
  - Pyrexia [Unknown]
  - Cyanosis [Recovered/Resolved]
  - Pain [Unknown]
  - Bradycardia [Unknown]
  - Pneumonia [Not Recovered/Not Resolved]
  - Tremor [Recovered/Resolved]
  - Hypoxia [Unknown]
  - Nystagmus [Not Recovered/Not Resolved]
  - Oxygen saturation decreased [Not Recovered/Not Resolved]
  - Neck pain [Unknown]
  - Productive cough [Unknown]

NARRATIVE: CASE EVENT DATE: 20190917
